FAERS Safety Report 8458837-8 (Version None)
Quarter: 2012Q2

REPORT INFORMATION
  Report Type: 
  Country: None (occurrence: None)
  Receive Date: 20120622
  Receipt Date: 20120615
  Transmission Date: 20120825
  Serious: Yes (Hospitalization, Other)
  Sender: FDA-Public Use
  Company Number: US-PFIZER INC-2012146467

PATIENT
  Sex: Male
  Weight: 40.99 kg

DRUGS (4)
  1. ZARONTIN [Suspect]
     Indication: PARTIAL SEIZURES
     Dosage: 750 MG (250MG CAPSULES, 1 CAPSULE EVERY MORNING AND 2 CAPSULES EVERY NIGHT)
     Route: 048
     Dates: start: 20101122, end: 20101216
  2. DEPAKOTE [Concomitant]
     Indication: EPILEPSY
     Dosage: 500 MG, 2X/DAY
     Route: 048
  3. CIPRODEX [Concomitant]
     Indication: OTITIS MEDIA
     Dosage: UNK
  4. ZARONTIN [Suspect]
     Indication: EPILEPSY

REACTIONS (7)
  - ATELECTASIS [None]
  - STEVENS-JOHNSON SYNDROME [None]
  - ORAL INFECTION [None]
  - TOXIC EPIDERMAL NECROLYSIS [None]
  - MYCOPLASMA INFECTION [None]
  - ABDOMINAL DISCOMFORT [None]
  - SYSTEMIC INFLAMMATORY RESPONSE SYNDROME [None]
